FAERS Safety Report 20992900 (Version 1)
Quarter: 2022Q2

REPORT INFORMATION
  Report Type: Spontaneous
  Country: US (occurrence: None)
  Receive Date: 20220621
  Receipt Date: 20220621
  Transmission Date: 20220721
  Serious: Yes (Death)
  Sender: FDA-Public Use
  Company Number: None

PATIENT
  Age: 70 Year
  Sex: Female

DRUGS (1)
  1. PROLIA [Suspect]
     Active Substance: DENOSUMAB
     Dosage: 60 OTHER SUBCUTANEOUS?
     Route: 058
     Dates: start: 202111

REACTIONS (1)
  - Death [None]

NARRATIVE: CASE EVENT DATE: 20220408
